FAERS Safety Report 13388565 (Version 1)
Quarter: 2017Q1

REPORT INFORMATION
  Report Type: Spontaneous
  Country: US (occurrence: US)
  Receive Date: 20170330
  Receipt Date: 20170330
  Transmission Date: 20170429
  Serious: No
  Sender: FDA-Public Use
  Company Number: US-009507513-1703USA012419

PATIENT
  Sex: Female

DRUGS (1)
  1. NEXPLANON [Suspect]
     Active Substance: ETONOGESTREL
     Dosage: 68 MG (1 IMPLANT) , UNK
     Route: 059

REACTIONS (5)
  - Acne [Unknown]
  - Mood altered [Unknown]
  - Device difficult to use [Recovered/Resolved]
  - Vaginal haemorrhage [Unknown]
  - Adverse event [Unknown]
